FAERS Safety Report 17453230 (Version 1)
Quarter: 2020Q1

REPORT INFORMATION
  Report Type: Spontaneous
  Country: US (occurrence: US)
  Receive Date: 20200224
  Receipt Date: 20200224
  Transmission Date: 20200409
  Serious: No
  Sender: FDA-Public Use
  Company Number: US-PERRIGO-19US001490

PATIENT
  Sex: Male
  Weight: 86.17 kg

DRUGS (7)
  1. HUMERA [Concomitant]
     Active Substance: ADALIMUMAB
     Indication: CROHN^S DISEASE
     Dosage: 40 MG, WEEKLY
     Route: 065
  2. REMERON [Concomitant]
     Active Substance: MIRTAZAPINE
     Indication: DEPRESSION
     Dosage: 15 MG, QD
     Route: 048
  3. REMERON [Concomitant]
     Active Substance: MIRTAZAPINE
     Indication: ANXIETY
  4. LOPERAMIDE HYDROCHLORIDE. [Suspect]
     Active Substance: LOPERAMIDE HYDROCHLORIDE
     Indication: CROHN^S DISEASE
     Dosage: 4 MG, QD, PRN
     Route: 048
  5. ZOFRAN [Concomitant]
     Active Substance: ONDANSETRON HYDROCHLORIDE
     Indication: NAUSEA
     Dosage: UNK
     Route: 065
  6. HUMERA [Concomitant]
     Active Substance: ADALIMUMAB
     Indication: RHEUMATOID ARTHRITIS
  7. METHOTREXATE. [Concomitant]
     Active Substance: METHOTREXATE
     Indication: RHEUMATOID ARTHRITIS
     Dosage: 25 MG, WEEKLY
     Route: 065

REACTIONS (2)
  - Product residue present [Recovered/Resolved]
  - Off label use [Unknown]
